FAERS Safety Report 13115010 (Version 1)
Quarter: 2017Q1

REPORT INFORMATION
  Report Type: Spontaneous
  Country: US (occurrence: US)
  Receive Date: 20170113
  Receipt Date: 20170113
  Transmission Date: 20170428
  Serious: Yes (Death)
  Sender: FDA-Public Use
  Company Number: US-RELYPSA-RLY2016004751

PATIENT
  Age: 88 Year
  Sex: Male

DRUGS (8)
  1. LORAZEPAM. [Concomitant]
     Active Substance: LORAZEPAM
  2. ETHACRYNIC ACID. [Concomitant]
     Active Substance: ETHACRYNIC ACID
  3. VELTASSA [Suspect]
     Active Substance: PATIROMER
     Indication: HYPERKALAEMIA
     Dosage: 8.4 G, QD
     Route: 048
     Dates: start: 20160830
  4. HYDROMORPHONE [Concomitant]
     Active Substance: HYDROMORPHONE
  5. FENTANYL. [Concomitant]
     Active Substance: FENTANYL
  6. MORPHINE [Concomitant]
     Active Substance: MORPHINE
  7. HYOSCYAMINE. [Concomitant]
     Active Substance: HYOSCYAMINE
  8. METOPROLOL SUCCINATE. [Concomitant]
     Active Substance: METOPROLOL SUCCINATE

REACTIONS (1)
  - Cerebrovascular accident [Fatal]

NARRATIVE: CASE EVENT DATE: 20161220
